FAERS Safety Report 4295376-2 (Version None)
Quarter: 2004Q1

REPORT INFORMATION
  Report Type: 
  Country: None (occurrence: None)
  Receive Date: 20040216
  Receipt Date: 20030708
  Transmission Date: 20041129
  Serious: No
  Sender: FDA-Public Use
  Company Number: US-GLAXOSMITHKLINE-A0415769A

PATIENT
  Age: 55 Year
  Sex: Female

DRUGS (2)
  1. LAMICTAL [Suspect]
     Indication: COMPLEX PARTIAL SEIZURES
     Dosage: 500MG PER DAY
     Route: 048
     Dates: start: 19980101
  2. SULFASALAZINE [Concomitant]

REACTIONS (2)
  - AMNESIA [None]
  - ARTHRITIS [None]
